FAERS Safety Report 9282979 (Version 1)
Quarter: 2013Q2

REPORT INFORMATION
  Report Type: Spontaneous
  Country: US (occurrence: US)
  Receive Date: 20130510
  Receipt Date: 20130510
  Transmission Date: 20140414
  Serious: No
  Sender: FDA-Public Use
  Company Number: US-GLAXOSMITHKLINE-A0970526A

PATIENT
  Age: 64 Year
  Sex: Female

DRUGS (6)
  1. TYKERB [Suspect]
     Indication: BREAST CANCER
     Dosage: 6TAB PER DAY
     Route: 048
     Dates: start: 20120315
  2. CARVEDILOL [Concomitant]
  3. HYDROCHLOROTHIAZIDE [Concomitant]
  4. AROMASIN [Concomitant]
  5. OSCAL D [Concomitant]
  6. PREVIDENT [Concomitant]

REACTIONS (1)
  - Diarrhoea [Recovered/Resolved]
